FAERS Safety Report 17567382 (Version 1)
Quarter: 2020Q1

REPORT INFORMATION
  Report Type: Spontaneous
  Country: US (occurrence: US)
  Receive Date: 20200320
  Receipt Date: 20200320
  Transmission Date: 20200409
  Serious: Yes (Other)
  Sender: FDA-Public Use
  Company Number: US-VERTEX PHARMACEUTICALS-2020-002541

PATIENT
  Age: 69 Year
  Sex: Female

DRUGS (1)
  1. TRIKAFTA [Suspect]
     Active Substance: ELEXACAFTOR\IVACAFTOR\TEZACAFTOR
     Indication: CYSTIC FIBROSIS
     Dosage: (100 MG ELEXACAFTOR/ 50 MG TEZACAFTOR/ 75 MG IVACAFTOR; 150MG IVACAFTOR) (REGULAR DOSAGE)
     Route: 048
     Dates: start: 20200112, end: 20200127

REACTIONS (9)
  - Diarrhoea [Unknown]
  - Abdominal discomfort [Recovering/Resolving]
  - Nasal dryness [Recovering/Resolving]
  - Pyrexia [Recovering/Resolving]
  - Bowel movement irregularity [Recovering/Resolving]
  - Cough [Recovering/Resolving]
  - Haematochezia [Recovering/Resolving]
  - Headache [Recovering/Resolving]
  - Rash [Not Recovered/Not Resolved]

NARRATIVE: CASE EVENT DATE: 202001
